FAERS Safety Report 4558754-X (Version None)
Quarter: 2005Q1

REPORT INFORMATION
  Report Type: 
  Country: None (occurrence: None)
  Receive Date: 20050121
  Receipt Date: 20050111
  Transmission Date: 20050727
  Serious: Yes (Other)
  Sender: FDA-Public Use
  Company Number: US-JNJFOC-20050103018

PATIENT
  Age: 52 Year
  Sex: Female
  Weight: 77.11 kg

DRUGS (16)
  1. TOPAMAX [Suspect]
     Route: 049
  2. LIPITOR [Concomitant]
  3. VERAPAMIL [Concomitant]
  4. ASPIRIN [Concomitant]
  5. PLAVIX [Concomitant]
  6. MULTI-VITAMINS [Concomitant]
  7. MULTI-VITAMINS [Concomitant]
  8. MULTI-VITAMINS [Concomitant]
  9. MULTI-VITAMINS [Concomitant]
  10. MULTI-VITAMINS [Concomitant]
  11. MULTI-VITAMINS [Concomitant]
  12. MULTI-VITAMINS [Concomitant]
  13. MULTI-VITAMINS [Concomitant]
  14. ACTOS [Concomitant]
  15. IBUPROFIN [Concomitant]
  16. BLOOD PRESSURE MEDICATION [Concomitant]

REACTIONS (4)
  - AMNESIA [None]
  - CEREBROVASCULAR ACCIDENT [None]
  - CONVULSION [None]
  - MENTAL IMPAIRMENT [None]
